FAERS Safety Report 23183681 (Version 1)
Quarter: 2023Q4

REPORT INFORMATION
  Report Type: Spontaneous
  Country: None (occurrence: DE)
  Receive Date: 20231114
  Receipt Date: 20231114
  Transmission Date: 20240110
  Serious: Yes (Hospitalization)
  Sender: FDA-Public Use
  Company Number: DE-B.Braun Medical Inc.-2148283

PATIENT
  Age: 76 Year
  Sex: Male
  Weight: 78 kg

DRUGS (37)
  1. DEXTROSE [Suspect]
     Active Substance: DEXTROSE\DEXTROSE MONOHYDRATE
     Indication: Parenteral nutrition
     Route: 042
  2. UNSPECIFIED INGREDIENT [Suspect]
     Active Substance: UNSPECIFIED INGREDIENT
  3. AMINO ACIDS\DEXTROSE\ELECTROLYTES NOS\SOYBEAN OIL [Suspect]
     Active Substance: AMINO ACIDS\DEXTROSE\ELECTROLYTES NOS\SOYBEAN OIL
  4. ROBINUL [Suspect]
     Active Substance: GLYCOPYRROLATE
  5. MOVICOL [Suspect]
     Active Substance: POLYETHYLENE GLYCOL 3350\POTASSIUM CHLORIDE\SODIUM BICARBONATE\SODIUM CHLORIDE
  6. PANCRELIPASE [Suspect]
     Active Substance: PANCRELIPASE
  7. TAVOR (LORAZEPAM) [Suspect]
     Active Substance: LORAZEPAM
  8. FENTANYL [Suspect]
     Active Substance: FENTANYL\FENTANYL CITRATE
  9. UNSPECIFIED INGREDIENT [Suspect]
     Active Substance: UNSPECIFIED INGREDIENT
  10. BISOPROLOL. [Suspect]
     Active Substance: BISOPROLOL FUMARATE
  11. VITAMIN D3 [Suspect]
     Active Substance: CHOLECALCIFEROL
  12. UNSPECIFIED INGREDIENT [Suspect]
     Active Substance: UNSPECIFIED INGREDIENT
  13. METAMIZOLE [Suspect]
     Active Substance: METAMIZOLE
  14. ABSTRAL [Suspect]
     Active Substance: FENTANYL CITRATE
  15. SODIUM PICOSULFATE [Suspect]
     Active Substance: SODIUM PICOSULFATE
  16. LEVOTHYROXINE SODIUM [Suspect]
     Active Substance: LEVOTHYROXINE SODIUM
  17. MAGNESIUM [Suspect]
     Active Substance: MAGNESIUM
  18. ESOMEPRAZOLE [Suspect]
     Active Substance: ESOMEPRAZOLE
  19. ASPIRIN [Suspect]
     Active Substance: ASPIRIN
  20. OXYCODONE. [Suspect]
     Active Substance: OXYCODONE HYDROCHLORIDE
  21. FRESUBIN [Suspect]
     Active Substance: AMINO ACIDS\DEXTROSE\ELECTROLYTES NOS\SOYBEAN OIL\VITAMINS
  22. MORPHINE [Suspect]
     Active Substance: MORPHINE
  23. ELECTROLYTES NOS\MINERALS [Suspect]
     Active Substance: ELECTROLYTES NOS\MINERALS
  24. METFORMIN [Suspect]
     Active Substance: METFORMIN HYDROCHLORIDE
  25. ACTRAPID [Suspect]
     Active Substance: INSULIN HUMAN
  26. PROMETHAZINE [Suspect]
     Active Substance: PROMETHAZINE HYDROCHLORIDE
  27. FERRO-SANOL DUODENAL [Suspect]
     Active Substance: FERROUS GLYCINE SULFATE
  28. AMINO ACIDS\DEXTROSE\ELECTROLYTES NOS\SOYBEAN OIL [Suspect]
     Active Substance: AMINO ACIDS\DEXTROSE\ELECTROLYTES NOS\SOYBEAN OIL
  29. CERNEVIT [Suspect]
     Active Substance: VITAMINS
  30. ENOXAPARIN SODIUM [Suspect]
     Active Substance: ENOXAPARIN SODIUM
  31. VITAMIN B COMPLEX [Suspect]
     Active Substance: CYANOCOBALAMIN\DEXPANTHENOL\NIACINAMIDE\PYRIDOXINE HYDROCHLORIDE\RIBOFLAVIN 5^-PHOSPHATE SODIUM\THIA
  32. PREDNISONE [Concomitant]
     Active Substance: PREDNISONE
  33. METHOTREXATE [Concomitant]
     Active Substance: METHOTREXATE
  34. PANTOPRAZOLE [Concomitant]
     Active Substance: PANTOPRAZOLE
  35. FOLIC ACID [Concomitant]
     Active Substance: FOLIC ACID
  36. SULFASALAZINE [Concomitant]
     Active Substance: SULFASALAZINE
  37. PREDNISOLONE [Concomitant]
     Active Substance: PREDNISOLONE

REACTIONS (10)
  - General physical health deterioration [None]
  - Blood pressure decreased [None]
  - Abscess [None]
  - Diarrhoea [None]
  - Drug intolerance [None]
  - Dehiscence [None]
  - Body temperature increased [None]
  - Tachycardia [None]
  - Chills [None]
  - Drug hypersensitivity [None]
